FAERS Safety Report 4685232-X (Version None)
Quarter: 2005Q2

REPORT INFORMATION
  Report Type: 
  Country: None (occurrence: None)
  Receive Date: 20050607
  Receipt Date: 20050601
  Transmission Date: 20051028
  Serious: Yes (Other)
  Sender: FDA-Public Use
  Company Number: GXKR2005GB01114

PATIENT
  Age: 52 Year
  Sex: Male

DRUGS (6)
  1. PAROXETINE HCL [Suspect]
     Dosage: SEE IMAGE
     Dates: end: 20020101
  2. IBUPROFEN [Suspect]
  3. ACETAMINOPHEN [Suspect]
  4. PREDNISONE [Suspect]
  5. ALCOHOL (ETHANOL) [Concomitant]
  6. PAROXETINE HCL [Concomitant]

REACTIONS (12)
  - ABNORMAL DREAMS [None]
  - ALCOHOLISM [None]
  - ANGER [None]
  - CRYING [None]
  - DISTURBANCE IN ATTENTION [None]
  - DRUG WITHDRAWAL SYNDROME [None]
  - EMOTIONAL DISORDER [None]
  - IMPULSIVE BEHAVIOUR [None]
  - IRRITABILITY [None]
  - MULTIPLE DRUG OVERDOSE [None]
  - NIGHTMARE [None]
  - SUICIDAL IDEATION [None]
